FAERS Safety Report 5358937-5 (Version None)
Quarter: 2007Q2

REPORT INFORMATION
  Report Type: 
  Country: None (occurrence: None)
  Receive Date: 20070615
  Receipt Date: 20070608
  Transmission Date: 20071010
  Serious: Yes (Life-Threatening, Hospitalization)
  Sender: FDA-Public Use
  Company Number: B0475183A

PATIENT
  Age: 64 Year
  Sex: Male
  Weight: 70 kg

DRUGS (5)
  1. LAMICTAL [Suspect]
     Dosage: 100MG PER DAY
     Route: 048
     Dates: end: 20061227
  2. PLENUR [Suspect]
     Route: 048
     Dates: start: 20061201, end: 20061227
  3. CYMBALTA [Suspect]
     Dosage: 60MG PER DAY
     Route: 048
     Dates: end: 20061227
  4. ANAFRANIL [Suspect]
     Dosage: 75MG PER DAY
     Route: 048
     Dates: end: 20061227
  5. DORKEN [Suspect]
     Dosage: 10MG PER DAY
     Route: 048
     Dates: end: 20061227

REACTIONS (3)
  - HYPERNATRAEMIA [None]
  - NEPHROGENIC DIABETES INSIPIDUS [None]
  - STUPOR [None]
